FAERS Safety Report 24054613 (Version 1)
Quarter: 2024Q3

REPORT INFORMATION
  Report Type: Spontaneous
  Country: US (occurrence: US)
  Receive Date: 20240705
  Receipt Date: 20240705
  Transmission Date: 20241017
  Serious: Yes (Other)
  Sender: BAXTER
  Company Number: US-BAXTER-2024BAX020807

PATIENT
  Age: 3 Decade
  Sex: Female

DRUGS (7)
  1. NEXTERONE [Suspect]
     Active Substance: AMIODARONE HYDROCHLORIDE
     Dosage: AMIODARONE TAPER WAS INITIATED AS A BRIDGE STRATEGY
     Route: 065
  2. METOPROLOL TARTRATE [Suspect]
     Active Substance: METOPROLOL TARTRATE
     Dosage: METOPROLOL SUCCINATE 12.5 MG DAILY WAS STARTED AND UPTITRATED
     Route: 065
  3. SOTALOL [Suspect]
     Active Substance: SOTALOL
     Route: 065
  4. ADENOSINE [Concomitant]
     Active Substance: ADENOSINE
     Indication: Investigation
     Route: 065
  5. LOSARTAN [Concomitant]
     Active Substance: LOSARTAN
     Dosage: 12.5 MG DAILY
     Route: 065
  6. SPIRONOLACTONE [Concomitant]
     Active Substance: SPIRONOLACTONE
     Route: 065
  7. METOPROLOL SUCCINATE [Concomitant]
     Active Substance: METOPROLOL SUCCINATE
     Dosage: 25 MG DAILY
     Route: 065

REACTIONS (2)
  - Hyperthyroidism [Unknown]
  - Exposure during pregnancy [Unknown]
